FAERS Safety Report 4534383-9 (Version None)
Quarter: 2004Q4

REPORT INFORMATION
  Report Type: 
  Country: None (occurrence: None)
  Receive Date: 20041214
  Receipt Date: 20041022
  Transmission Date: 20050328
  Serious: Yes (Hospitalization)
  Sender: FDA-Public Use
  Company Number: 2004241226US

PATIENT
  Age: 52 Year
  Sex: Female
  Weight: 63.5 kg

DRUGS (4)
  1. BEXTRA [Suspect]
     Indication: ARTHRITIS
     Dosage: 20 MG, QD, ORAL
     Route: 048
     Dates: end: 20041001
  2. ENBREL [Concomitant]
  3. METHOTREXATE [Concomitant]
  4. PREVACID [Concomitant]

REACTIONS (1)
  - MYOCARDIAL INFARCTION [None]
